FAERS Safety Report 9417079 (Version 1)
Quarter: 2013Q3

REPORT INFORMATION
  Report Type: Spontaneous
  Country: BG (occurrence: BG)
  Receive Date: 20130724
  Receipt Date: 20130724
  Transmission Date: 20140515
  Serious: Yes (Other)
  Sender: FDA-Public Use
  Company Number: BG-PFIZER INC-2013214165

PATIENT
  Sex: Female

DRUGS (1)
  1. SORTIS [Suspect]
     Dosage: UNK
     Dates: start: 2005

REACTIONS (2)
  - Pancreatitis chronic [Unknown]
  - Cystic fibrosis pancreatic [Unknown]
